FAERS Safety Report 24618597 (Version 1)
Quarter: 2024Q4

REPORT INFORMATION
  Report Type: Spontaneous
  Country: CA (occurrence: CA)
  Receive Date: 20241114
  Receipt Date: 20241114
  Transmission Date: 20250114
  Serious: Yes (Hospitalization)
  Sender: HIKMA
  Company Number: CA-HIKMA PHARMACEUTICALS USA INC.-CA-H14001-24-10360

PATIENT
  Age: 38 Year
  Sex: Female

DRUGS (1)
  1. LIDOCAINE [Suspect]
     Active Substance: LIDOCAINE
     Indication: Pain prophylaxis
     Dosage: UNKNOWN
     Route: 065

REACTIONS (3)
  - Dysgeusia [Unknown]
  - Local anaesthetic systemic toxicity [Unknown]
  - Paraesthesia [Unknown]
